FAERS Safety Report 8825412 (Version 2)
Quarter: 2013Q1

REPORT INFORMATION
  Report Type: Spontaneous
  Country: FR (occurrence: FR)
  Receive Date: 20121004
  Receipt Date: 20130208
  Transmission Date: 20140127
  Serious: Yes (Other)
  Sender: FDA-Public Use
  Company Number: FR-UCBSA-067941

PATIENT
  Age: 42 Year
  Sex: Male
  Weight: 74 kg

DRUGS (3)
  1. KEPPRA [Suspect]
     Indication: CONVULSION
     Route: 048
     Dates: start: 20120823
  2. KEPPRA [Suspect]
     Indication: EPILEPSY
     Route: 048
     Dates: start: 20120823
  3. NONE [Concomitant]

REACTIONS (4)
  - Hypoglycaemia [Unknown]
  - Hyperphagia [Unknown]
  - Convulsion [Not Recovered/Not Resolved]
  - Asthenia [Unknown]
